FAERS Safety Report 9145399 (Version 1)
Quarter: 2013Q1

REPORT INFORMATION
  Report Type: Spontaneous
  Country: US (occurrence: None)
  Receive Date: 20130226
  Receipt Date: 20130226
  Transmission Date: 20140127
  Serious: No
  Sender: FDA-Public Use
  Company Number: None

PATIENT
  Age: 58 Year
  Sex: Female

DRUGS (1)
  1. AUBAGIO [Suspect]
     Dosage: 7MG DAILY PO
     Route: 048
     Dates: start: 20130123, end: 20130215

REACTIONS (5)
  - Tachycardia [None]
  - Palpitations [None]
  - Restless legs syndrome [None]
  - Paraesthesia [None]
  - Insomnia [None]
